FAERS Safety Report 7658605-0 (Version None)
Quarter: 2011Q3

REPORT INFORMATION
  Report Type: 
  Country: None (occurrence: None)
  Receive Date: 20110805
  Receipt Date: 20110802
  Transmission Date: 20111222
  Serious: Yes (Other)
  Sender: FDA-Public Use
  Company Number: AU-BRISTOL-MYERS SQUIBB COMPANY-15864713

PATIENT
  Age: 69 Year
  Sex: Female
  Weight: 90 kg

DRUGS (21)
  1. PANAMAX [Concomitant]
     Indication: PAIN MANAGEMENT
     Dosage: 1 DF = PANAMAX 1000U AM+PM.
  2. AMYLASE+LIPASE+PANCRELIPASE+PROTEASE [Concomitant]
     Indication: PANCREATIC ENZYMES
     Dosage: PANZYTRAT 25000 1 DF = 2 TABS
  3. LEVEMIR [Concomitant]
     Dosage: 110UNITS AS HALF.
  4. ARAVA [Concomitant]
  5. LYRICA [Concomitant]
     Indication: RESTLESS LEGS SYNDROME
  6. DOXYCYCLINE [Concomitant]
     Indication: DRY EYE
  7. PERIACTIN [Concomitant]
     Indication: PRURITUS
  8. BYETTA [Concomitant]
     Indication: GLUCAGON SECRETION DISORDER
     Dosage: 10U AM+PM.
  9. PERINDOPRIL ERBUMINE [Concomitant]
  10. FUROSEMIDE [Concomitant]
  11. ORENCIA [Suspect]
     Indication: RHEUMATOID ARTHRITIS
     Dosage: HAD 2 DOSES IN MARCH 2011, ALSO ON ON 17 JUNE 2011
     Dates: start: 20110224
  12. LIPITOR [Concomitant]
  13. VASOCARDOL [Concomitant]
  14. MS CONTIN [Concomitant]
  15. HUMIRA [Concomitant]
     Indication: RHEUMATOID ARTHRITIS
     Dosage: 1 DF = 1 HUMIRA FORTNIGHTLY.
  16. CARTIA XT [Concomitant]
     Indication: COAGULOPATHY
  17. PLAQUENIL [Concomitant]
  18. NEXIUM [Concomitant]
     Indication: GASTROOESOPHAGEAL REFLUX DISEASE
  19. PREDNISOLONE [Concomitant]
     Indication: VASCULITIS
  20. APIDRA [Concomitant]
     Dosage: 14U,14U,20U.
  21. LIOTHYRONINE SODIUM [Concomitant]

REACTIONS (5)
  - SWELLING FACE [None]
  - OEDEMA PERIPHERAL [None]
  - VOMITING [None]
  - ABDOMINAL PAIN [None]
  - SYNCOPE [None]
